FAERS Safety Report 23857958 (Version 1)
Quarter: 2024Q2

REPORT INFORMATION
  Report Type: Spontaneous
  Country: US (occurrence: US)
  Receive Date: 20240515
  Receipt Date: 20240515
  Transmission Date: 20240716
  Serious: No
  Sender: FDA-Public Use
  Company Number: US-HALEON-2175018

PATIENT

DRUGS (1)
  1. SENSODYNE REPAIR AND PROTECT [Suspect]
     Active Substance: STANNOUS FLUORIDE
     Indication: Hyperaesthesia teeth
     Dates: start: 2024

REACTIONS (2)
  - Tongue coated [Unknown]
  - Glossodynia [Unknown]

NARRATIVE: CASE EVENT DATE: 20240101
